FAERS Safety Report 24934183 (Version 1)
Quarter: 2025Q1

REPORT INFORMATION
  Report Type: Report from Study
  Country: US (occurrence: US)
  Receive Date: 20250206
  Receipt Date: 20250206
  Transmission Date: 20250408
  Serious: No
  Sender: EXELIXIS
  Company Number: US-EXELIXIS-EXL-2024-002545

PATIENT
  Sex: Male
  Weight: 80.816 kg

DRUGS (1)
  1. CABOMETYX [Suspect]
     Active Substance: CABOZANTINIB S-MALATE
     Indication: Renal cancer
     Dosage: 40 MG, QD
     Route: 048
     Dates: start: 20240930

REACTIONS (8)
  - Adverse drug reaction [Unknown]
  - Blood thyroid stimulating hormone increased [Recovered/Resolved]
  - Asthenia [Unknown]
  - Dysgeusia [Unknown]
  - Exfoliative rash [Unknown]
  - Oesophageal disorder [Unknown]
  - Blood creatinine abnormal [Recovering/Resolving]
  - Glomerular filtration rate abnormal [Recovering/Resolving]
